FAERS Safety Report 5639372-9 (Version None)
Quarter: 2008Q1

REPORT INFORMATION
  Report Type: 
  Country: None (occurrence: None)
  Receive Date: 20080226
  Receipt Date: 20080214
  Transmission Date: 20080703
  Serious: Yes (Hospitalization)
  Sender: FDA-Public Use
  Company Number: DE-PFIZER INC-2008011462

PATIENT
  Sex: Male

DRUGS (9)
  1. SUTENT [Suspect]
     Indication: METASTATIC RENAL CELL CARCINOMA
     Dosage: DAILY DOSE:50MG
     Route: 048
     Dates: start: 20071114, end: 20071118
  2. ALLOPURINOL [Concomitant]
     Route: 048
  3. SEVREDOL [Concomitant]
     Route: 048
  4. MACROGOL [Concomitant]
     Route: 048
  5. ENALAPRIL MALEATE [Concomitant]
     Route: 048
  6. METAMIZOLE [Concomitant]
     Route: 048
  7. MORPHINE [Concomitant]
  8. NOVALGIN [Concomitant]
     Route: 048
  9. MARCUMAR [Concomitant]
     Route: 048

REACTIONS (3)
  - CONFUSIONAL STATE [None]
  - DYSARTHRIA [None]
  - GAIT DISTURBANCE [None]
